FAERS Safety Report 7399435-7 (Version None)
Quarter: 2011Q2

REPORT INFORMATION
  Report Type: 
  Country: None (occurrence: None)
  Receive Date: 20110407
  Receipt Date: 20110325
  Transmission Date: 20111010
  Serious: Yes (Hospitalization)
  Sender: FDA-Public Use
  Company Number: PHHO2011IT05450

PATIENT
  Sex: Female
  Weight: 81 kg

DRUGS (8)
  1. HUMALOG [Concomitant]
     Indication: DIABETES MELLITUS
     Dosage: UNK
     Dates: start: 20110311
  2. LASIX [Concomitant]
     Indication: HYPERTENSION
     Dosage: UNK
     Dates: start: 20110311
  3. BENAZEPRIL HYDROCHLORIDE [Suspect]
     Indication: HYPERTENSION
     Dosage: 20 MG, QD
     Route: 048
     Dates: start: 20100212, end: 20110226
  4. SODIUM BICARBONATE [Concomitant]
     Indication: METABOLIC ACIDOSIS
     Dosage: UNK
     Dates: start: 20100122
  5. PANTORC [Concomitant]
     Dosage: UNK
     Dates: start: 20110315
  6. ARANESP [Concomitant]
     Indication: ANAEMIA
     Dosage: UNK
     Dates: start: 20110311
  7. HUMALOG [Concomitant]
     Indication: DIABETES MELLITUS
     Dosage: UNK
     Dates: start: 20110311
  8. FERRO-GRAD [Concomitant]
     Indication: ANAEMIA
     Dosage: UNK
     Dates: start: 20110311

REACTIONS (5)
  - RENAL FAILURE ACUTE [None]
  - VOMITING [None]
  - DIARRHOEA [None]
  - PNEUMONIA [None]
  - URINARY TRACT INFECTION [None]
